FAERS Safety Report 4872984-9 (Version None)
Quarter: 2006Q1

REPORT INFORMATION
  Report Type: 
  Country: None (occurrence: None)
  Receive Date: 20060105
  Receipt Date: 20051107
  Transmission Date: 20060701
  Serious: No
  Sender: FDA-Public Use
  Company Number: US-BRISTOL-MYERS SQUIBB COMPANY-13177993

PATIENT
  Age: 49 Year
  Sex: Male
  Weight: 84 kg

DRUGS (1)
  1. SERZONE [Suspect]
     Route: 048

REACTIONS (2)
  - CARDIAC DISORDER [None]
  - SEXUAL DYSFUNCTION [None]
